FAERS Safety Report 5272975-2 (Version None)
Quarter: 2007Q1

REPORT INFORMATION
  Report Type: 
  Country: None (occurrence: None)
  Receive Date: 20070322
  Receipt Date: 20070307
  Transmission Date: 20070707
  Serious: Yes (Death, Other)
  Sender: FDA-Public Use
  Company Number: PFIZER INC-2006141027

PATIENT
  Sex: Male
  Weight: 146.1 kg

DRUGS (1)
  1. CELEBREX [Suspect]
     Indication: OSTEOARTHRITIS
     Route: 048
     Dates: start: 20010311, end: 20030915

REACTIONS (2)
  - ARTERIOSCLEROSIS [None]
  - CORONARY ARTERY THROMBOSIS [None]
